FAERS Safety Report 8023402 (Version 4)
Quarter: 2016Q1

REPORT INFORMATION
  Report Type: Report from Study
  Country: US (occurrence: US)
  Receive Date: 20110706
  Receipt Date: 20160203
  Transmission Date: 20160526
  Serious: Yes (Hospitalization)
  Sender: FDA-Public Use
  Company Number: US-VIIV HEALTHCARE LIMITED-B0692992A

PATIENT
  Age: 52 Year
  Sex: Male
  Weight: 93.88 kg

DRUGS (24)
  1. DEPO-TESTOSTERONE [Concomitant]
     Active Substance: TESTOSTERONE CYPIONATE
     Dates: start: 20101019
  2. SALBUTAMOL [Concomitant]
     Active Substance: ALBUTEROL
     Dates: start: 20091211
  3. CHLORPROMAZINE. [Concomitant]
     Active Substance: CHLORPROMAZINE
     Dates: start: 20100602
  4. CEVIMELINE. [Concomitant]
     Active Substance: CEVIMELINE
     Dates: start: 20080610
  5. ESOMEPRAZOLE [Concomitant]
     Active Substance: ESOMEPRAZOLE
     Dates: start: 20080508
  6. ADVAIR HFA [Concomitant]
     Active Substance: FLUTICASONE PROPIONATE\SALMETEROL XINAFOATE
     Dates: start: 20080414
  7. LEVOTHYROXINE. [Concomitant]
     Active Substance: LEVOTHYROXINE
     Dates: start: 20101019
  8. LEVOCETIRIZINE [Concomitant]
     Active Substance: LEVOCETIRIZINE
     Dates: start: 20090202
  9. OLMESARTAN [Concomitant]
     Active Substance: OLMESARTAN
     Dates: start: 20091211
  10. FLUTICASONE [Concomitant]
     Active Substance: FLUTICASONE\FLUTICASONE PROPIONATE
  11. ZOFRAN [Concomitant]
     Active Substance: ONDANSETRON HYDROCHLORIDE
  12. OXYBUTYNIN [Concomitant]
     Active Substance: OXYBUTYNIN
     Dates: start: 20061011
  13. RALTEGRAVIR. [Suspect]
     Active Substance: RALTEGRAVIR
     Indication: HIV INFECTION
     Route: 048
     Dates: start: 20101118
  14. ETRAVIRINE [Suspect]
     Active Substance: ETRAVIRINE
     Indication: HIV INFECTION
     Route: 048
     Dates: start: 20101118
  15. CLONIDINE. [Concomitant]
     Active Substance: CLONIDINE
     Dates: start: 20101019
  16. NEBIVOLOL. [Concomitant]
     Active Substance: NEBIVOLOL
     Dates: start: 20091211
  17. BUPROPION. [Concomitant]
     Active Substance: BUPROPION
     Dates: start: 20061011
  18. MARAVIROC [Suspect]
     Active Substance: MARAVIROC
     Indication: HIV INFECTION
     Route: 048
     Dates: start: 20101118
  19. MIRTAZAPINE. [Concomitant]
     Active Substance: MIRTAZAPINE
     Dates: start: 20080303
  20. FENOFIBRATE. [Concomitant]
     Active Substance: FENOFIBRATE
     Dates: start: 20080610
  21. TADALAFIL [Concomitant]
     Active Substance: TADALAFIL
     Dates: start: 20100806
  22. DECA-DURABOLIN [Concomitant]
     Active Substance: NANDROLONE DECANOATE
     Dates: start: 20090202
  23. PREGABALIN. [Concomitant]
     Active Substance: PREGABALIN
     Dates: start: 20071210
  24. ROSUVASTATIN [Concomitant]
     Active Substance: ROSUVASTATIN
     Dates: start: 20080610

REACTIONS (2)
  - Blood potassium decreased [Recovered/Resolved]
  - Blood creatine phosphokinase increased [Recovered/Resolved]

NARRATIVE: CASE EVENT DATE: 201012
